FAERS Safety Report 10049536 (Version 1)
Quarter: 2014Q1

REPORT INFORMATION
  Report Type: Spontaneous
  Country: US (occurrence: None)
  Receive Date: 20140331
  Receipt Date: 20140331
  Transmission Date: 20141002
  Serious: Yes (Other)
  Sender: FDA-Public Use
  Company Number: None

PATIENT
  Sex: Male

DRUGS (2)
  1. PHENYTOIN [Suspect]
     Indication: GRAND MAL CONVULSION
     Dosage: ?PARTIAL INELIGIBLE
  2. DILANTIN [Suspect]
     Indication: COMPLEX PARTIAL SEIZURES

REACTIONS (2)
  - Product substitution issue [None]
  - Drug ineffective [None]
